FAERS Safety Report 8219948-5 (Version None)
Quarter: 2012Q1

REPORT INFORMATION
  Report Type: 
  Country: None (occurrence: None)
  Receive Date: 20120319
  Receipt Date: 20120315
  Transmission Date: 20120608
  Serious: Yes (Life-Threatening, Other)
  Sender: FDA-Public Use
  Company Number: PL-ROCHE-1049621

PATIENT
  Sex: Male
  Weight: 102 kg

DRUGS (6)
  1. CISPLATIN [Suspect]
     Indication: GASTRIC CANCER
     Dosage: 120
  2. MANNITOL [Concomitant]
     Route: 042
  3. CAPECITABINE [Suspect]
     Indication: GASTRIC CANCER
     Dosage: 1361
  4. EPIRUBICIN [Suspect]
     Indication: GASTRIC CANCER
     Dosage: 100
     Route: 042
     Dates: start: 20120126
  5. DEXAVEN (DEXAMETHASONE SODIUM PHOSPHATE) [Concomitant]
     Route: 042
     Dates: start: 20120126
  6. SETRONON [Concomitant]
     Route: 042

REACTIONS (2)
  - RENAL FAILURE [None]
  - TUMOUR LYSIS SYNDROME [None]
